FAERS Safety Report 8800736 (Version 1)
Quarter: 2012Q4

REPORT INFORMATION
  Report Type: 
  Country: FR (occurrence: FR)
  Receive Date: 20120921
  Receipt Date: 20120921
  Transmission Date: 20130627
  Serious: Yes (Hospitalization)
  Sender: FDA-Public Use
  Company Number: FR-SANOFI-AVENTIS-2012SA067906

PATIENT
  Age: 72 Year
  Sex: Male

DRUGS (3)
  1. RIFADINE [Suspect]
     Indication: DRUG USE FOR UNKNOWN INDICATION
     Route: 048
     Dates: start: 20120511, end: 20120717
  2. OFLOCET [Suspect]
     Indication: DRUG USE FOR UNKNOWN INDICATION
     Route: 048
     Dates: start: 20120511, end: 20120717
  3. SEROPRAM [Suspect]
     Indication: DRUG USE FOR UNKNOWN INDICATION
     Route: 048
     Dates: start: 20120627, end: 20120717

REACTIONS (5)
  - Status epilepticus [Recovered/Resolved]
  - Central nervous system lesion [None]
  - Cerebral calcification [None]
  - Haemangioma [None]
  - Unevaluable event [None]
